FAERS Safety Report 19996665 (Version 2)
Quarter: 2021Q4

REPORT INFORMATION
  Report Type: Spontaneous
  Country: US (occurrence: US)
  Receive Date: 20211026
  Receipt Date: 20211207
  Transmission Date: 20220303
  Serious: No
  Sender: FDA-Public Use
  Company Number: US-SANOFI-00820500

PATIENT
  Age: 54 Year
  Sex: Female

DRUGS (1)
  1. LANTUS SOLOSTAR [Suspect]
     Active Substance: INSULIN GLARGINE
     Indication: Diabetes mellitus
     Dosage: 28 IU, HS
     Route: 065
     Dates: start: 2001

REACTIONS (4)
  - Blood glucose increased [Unknown]
  - Drug dose omission by device [Unknown]
  - Device issue [Unknown]
  - Product storage error [Unknown]
